FAERS Safety Report 4976986-3 (Version None)
Quarter: 2006Q2

REPORT INFORMATION
  Report Type: 
  Country: None (occurrence: None)
  Receive Date: 20060412
  Receipt Date: 20060328
  Transmission Date: 20061013
  Serious: Yes (Other)
  Sender: FDA-Public Use
  Company Number: CIP06000706

PATIENT
  Sex: Female

DRUGS (5)
  1. ACTONEL [Suspect]
     Indication: OSTEOPENIA
     Dosage: 35 MC ONCE WEEKLY, ORAL
     Route: 048
     Dates: start: 20050101, end: 20060301
  2. ZOLOFT [Concomitant]
  3. ANTIHYPERTENSIVES [Concomitant]
  4. XXX [Concomitant]
  5. XXX [Concomitant]

REACTIONS (5)
  - ARTHRALGIA [None]
  - CARPAL TUNNEL SYNDROME [None]
  - HYPOAESTHESIA [None]
  - MYALGIA [None]
  - PAIN [None]
